FAERS Safety Report 13774119 (Version 1)
Quarter: 2017Q3

REPORT INFORMATION
  Report Type: Spontaneous
  Country: US (occurrence: US)
  Receive Date: 20170720
  Receipt Date: 20170720
  Transmission Date: 20171127
  Serious: No
  Sender: FDA-Public Use
  Company Number: None

PATIENT
  Age: 78 Year
  Sex: Male
  Weight: 85.3 kg

DRUGS (2)
  1. DARZALEX [Suspect]
     Active Substance: DARATUMUMAB
     Indication: PLASMA CELL MYELOMA
     Dosage: FREQUENCY QD X 2 (ILLEGIBLE) 1ST CYCLE
     Route: 042
     Dates: start: 20170718
  2. DARZALEX [Suspect]
     Active Substance: DARATUMUMAB

REACTIONS (3)
  - Infusion related reaction [None]
  - Tremor [None]
  - Feeling cold [None]

NARRATIVE: CASE EVENT DATE: 20170718
